FAERS Safety Report 5984052-3 (Version None)
Quarter: 2008Q4

REPORT INFORMATION
  Report Type: 
  Country: None (occurrence: None)
  Receive Date: 20081208
  Receipt Date: 20080808
  Transmission Date: 20090506
  Serious: Yes (Hospitalization)
  Sender: FDA-Public Use
  Company Number: US-AMGEN-QUU300566

PATIENT
  Sex: Female

DRUGS (2)
  1. ENBREL [Suspect]
     Indication: RHEUMATOID ARTHRITIS
     Route: 058
     Dates: start: 20070901
  2. ARAVA [Concomitant]
     Dates: start: 20071001

REACTIONS (3)
  - INJECTION SITE HAEMATOMA [None]
  - INJECTION SITE INDURATION [None]
  - PANCREATITIS [None]
